FAERS Safety Report 16270686 (Version 1)
Quarter: 2019Q2

REPORT INFORMATION
  Report Type: Spontaneous
  Country: BR (occurrence: BR)
  Receive Date: 20190503
  Receipt Date: 20190503
  Transmission Date: 20190711
  Serious: Yes (Other)
  Sender: FDA-Public Use
  Company Number: BR-SA-2019SA118539

PATIENT
  Sex: Female
  Weight: 76 kg

DRUGS (2)
  1. LANTUS [Suspect]
     Active Substance: INSULIN GLARGINE
     Indication: TYPE 1 DIABETES MELLITUS
     Dosage: 38 IU, HS,38 IU ONCE AT NIGHT
     Route: 058
     Dates: start: 2014
  2. NOVORAPID [Concomitant]
     Active Substance: INSULIN ASPART
     Indication: TYPE 1 DIABETES MELLITUS
     Dosage: UNK,16 IU IN THE MORNING AND IN THE AFTERNOON AND 8 IU AT NIGHT (3 TIMES A DAY)
     Route: 058

REACTIONS (2)
  - Renal failure [Unknown]
  - Visual impairment [Unknown]
